FAERS Safety Report 8461108-7 (Version None)
Quarter: 2012Q2

REPORT INFORMATION
  Report Type: 
  Country: None (occurrence: None)
  Receive Date: 20120625
  Receipt Date: 20120613
  Transmission Date: 20120825
  Serious: Yes (Life-Threatening, Hospitalization, Other)
  Sender: FDA-Public Use
  Company Number: US-PAR PHARMACEUTICAL, INC-2012SCPR004440

PATIENT

DRUGS (2)
  1. BUPROPION HCL [Suspect]
     Indication: PRODUCT USED FOR UNKNOWN INDICATION
     Dosage: UNK, UNKNOWN
     Route: 048
  2. DIPHENHYDRAMINE HCL [Interacting]
     Indication: PRODUCT USED FOR UNKNOWN INDICATION
     Dosage: UNK, UNKNOWN
     Route: 065

REACTIONS (18)
  - RENAL TUBULAR NECROSIS [None]
  - GRAND MAL CONVULSION [None]
  - COLITIS [None]
  - VENTRICULAR TACHYCARDIA [None]
  - PNEUMONIA ASPIRATION [None]
  - MENTAL STATUS CHANGES [None]
  - TOXICITY TO VARIOUS AGENTS [None]
  - TACHYCARDIA [None]
  - DRUG INTERACTION [None]
  - THROMBOCYTOPENIA [None]
  - HAEMODYNAMIC INSTABILITY [None]
  - CARDIAC ARREST [None]
  - CARDIOGENIC SHOCK [None]
  - RENAL FAILURE ACUTE [None]
  - GASTROINTESTINAL HAEMORRHAGE [None]
  - HEPATIC FAILURE [None]
  - SEPSIS [None]
  - ACUTE RESPIRATORY DISTRESS SYNDROME [None]
